FAERS Safety Report 16470715 (Version 1)
Quarter: 2019Q2

REPORT INFORMATION
  Report Type: Spontaneous
  Country: US (occurrence: US)
  Receive Date: 20190624
  Receipt Date: 20190624
  Transmission Date: 20190711
  Serious: Yes (Other)
  Sender: FDA-Public Use
  Company Number: US-CATALYST PHARMACEUTICALS, INC-2019CAT00078

PATIENT

DRUGS (1)
  1. AMIFAMPRIDINE [Suspect]
     Active Substance: AMIFAMPRIDINE

REACTIONS (1)
  - Seizure [Unknown]
